FAERS Safety Report 19486233 (Version 1)
Quarter: 2021Q3

REPORT INFORMATION
  Report Type: Spontaneous
  Country: US (occurrence: US)
  Receive Date: 20210702
  Receipt Date: 20210702
  Transmission Date: 20211014
  Serious: Yes (Death, Other)
  Sender: FDA-Public Use
  Company Number: US-SA-2021SA217645

PATIENT
  Sex: Male

DRUGS (1)
  1. ZANTAC [Suspect]
     Active Substance: RANITIDINE HYDROCHLORIDE
     Dates: start: 2009, end: 2019

REACTIONS (4)
  - Emotional distress [Unknown]
  - Injury [Unknown]
  - Lung neoplasm malignant [Fatal]
  - Pain [Unknown]

NARRATIVE: CASE EVENT DATE: 2020
